FAERS Safety Report 22305447 (Version 1)
Quarter: 2023Q2

REPORT INFORMATION
  Report Type: Spontaneous
  Country: US (occurrence: US)
  Receive Date: 20230510
  Receipt Date: 20230510
  Transmission Date: 20230722
  Serious: Yes (Other)
  Sender: FDA-Public Use
  Company Number: US-APIL-2313888US

PATIENT

DRUGS (1)
  1. BOTOX COSMETIC [Suspect]
     Active Substance: ONABOTULINUMTOXINA
     Indication: Muscle hypertrophy
     Dosage: 60 UNITS, SINGLE
     Dates: start: 20230203, end: 20230203

REACTIONS (4)
  - Deafness unilateral [Unknown]
  - Off label use [Unknown]
  - Nasopharyngitis [Unknown]
  - Dyspnoea [Unknown]

NARRATIVE: CASE EVENT DATE: 20230203
